FAERS Safety Report 14634554 (Version 1)
Quarter: 2018Q1

REPORT INFORMATION
  Report Type: Spontaneous
  Country: FR (occurrence: FR)
  Receive Date: 20180314
  Receipt Date: 20180314
  Transmission Date: 20180509
  Serious: Yes (Other)
  Sender: FDA-Public Use
  Company Number: FR-MERCK KGAA-2043679

PATIENT
  Sex: Female

DRUGS (1)
  1. NOVOTHYROX [Suspect]
     Active Substance: LEVOTHYROXINE SODIUM
     Indication: PRODUCT USED FOR UNKNOWN INDICATION

REACTIONS (12)
  - Loss of personal independence in daily activities [None]
  - Phlebitis [None]
  - Pain [None]
  - Social avoidant behaviour [None]
  - Fatigue [None]
  - Asthenia [None]
  - Myalgia [None]
  - Alopecia [None]
  - Anxiety [None]
  - Disturbance in attention [None]
  - Drug intolerance [None]
  - Somnolence [None]
